FAERS Safety Report 8880842 (Version 1)
Quarter: 2012Q4

REPORT INFORMATION
  Report Type: 
  Country: FR (occurrence: FR)
  Receive Date: 20121101
  Receipt Date: 20121101
  Transmission Date: 20130627
  Serious: Yes (Hospitalization)
  Sender: FDA-Public Use
  Company Number: FR-SANOFI-AVENTIS-2012SA077813

PATIENT
  Age: 79 Year
  Sex: Female
  Weight: 70 kg

DRUGS (3)
  1. LASILIX [Suspect]
     Indication: DRUG USE FOR UNKNOWN INDICATION
     Dosage: long-term therapy.
     Route: 048
     Dates: end: 20120717
  2. VISIPAQUE [Interacting]
     Indication: DRUG USE FOR UNKNOWN INDICATION
     Dosage: 320 mg/mL
     Route: 040
     Dates: start: 20120626, end: 20120626
  3. VALSARTAN [Interacting]
     Indication: DRUG USE FOR UNKNOWN INDICATION
     Dosage: long-term therapy.
     Route: 048
     Dates: end: 20120717

REACTIONS (3)
  - Renal tubular necrosis [Recovered/Resolved]
  - Renal failure acute [Recovered/Resolved]
  - Drug interaction [Recovered/Resolved]
